FAERS Safety Report 10513966 (Version 1)
Quarter: 2014Q4

REPORT INFORMATION
  Report Type: Spontaneous
  Country: NL (occurrence: NL)
  Receive Date: 20141013
  Receipt Date: 20141013
  Transmission Date: 20150528
  Serious: Yes (Hospitalization)
  Sender: FDA-Public Use
  Company Number: PHHY2014NL129981

PATIENT
  Sex: Female

DRUGS (2)
  1. INHALATION [Concomitant]
     Indication: SARCOIDOSIS
     Route: 065
  2. METHADONE SANDOZ [Suspect]
     Active Substance: METHADONE HYDROCHLORIDE
     Indication: PRODUCT USED FOR UNKNOWN INDICATION
     Route: 048

REACTIONS (9)
  - Hyperhidrosis [Unknown]
  - Somnolence [Unknown]
  - Thirst [Unknown]
  - Malaise [Unknown]
  - Nausea [Unknown]
  - Dizziness [Unknown]
  - Wrong drug administered [Unknown]
  - Drug dispensing error [Unknown]
  - Depressed level of consciousness [Unknown]
